FAERS Safety Report 15081139 (Version 1)
Quarter: 2018Q2

REPORT INFORMATION
  Report Type: Spontaneous
  Country: US (occurrence: US)
  Receive Date: 20180628
  Receipt Date: 20180628
  Transmission Date: 20180711
  Serious: Yes (Other)
  Sender: FDA-Public Use
  Company Number: US-ASTRAZENECA-2018SE81823

PATIENT

DRUGS (1)
  1. FASENRA [Suspect]
     Active Substance: BENRALIZUMAB
     Dosage: UNKNOWN
     Route: 058

REACTIONS (5)
  - Influenza [Unknown]
  - Cytokine storm [Unknown]
  - Lyme disease [Unknown]
  - Jarisch-Herxheimer reaction [Unknown]
  - Lymphadenopathy [Unknown]
